FAERS Safety Report 9278723 (Version 1)
Quarter: 2013Q2

REPORT INFORMATION
  Report Type: Spontaneous
  Country: US (occurrence: None)
  Receive Date: 20130506
  Receipt Date: 20130506
  Transmission Date: 20140414
  Serious: Yes (Other)
  Sender: FDA-Public Use
  Company Number: None

PATIENT
  Age: 68 Year
  Sex: Female
  Weight: 66.23 kg

DRUGS (11)
  1. REVLIMID [Suspect]
     Indication: PLASMA CELL MYELOMA
     Route: 048
     Dates: start: 20091109, end: 20120709
  2. CALCIUM SUPPLEMENT WITH VITAMIN D [Concomitant]
  3. ASPIRIN [Concomitant]
  4. LISINOPRIL [Concomitant]
  5. PRILOSEC [Concomitant]
  6. SULINDAC [Concomitant]
  7. LUNESTA [Concomitant]
  8. HYDRALAZINE [Concomitant]
  9. B12 [Concomitant]
  10. IMODIUM AD [Concomitant]
  11. ISOSORBIDE [Concomitant]

REACTIONS (2)
  - Pancytopenia [None]
  - Myelodysplastic syndrome [None]
